FAERS Safety Report 20858380 (Version 1)
Quarter: 2022Q2

REPORT INFORMATION
  Report Type: Spontaneous
  Country: CH (occurrence: CH)
  Receive Date: 20220521
  Receipt Date: 20220521
  Transmission Date: 20220721
  Serious: Yes (Other)
  Sender: FDA-Public Use
  Company Number: None

PATIENT
  Age: 54 Year
  Sex: Male
  Weight: 80 kg

DRUGS (11)
  1. METHOTREXATE (METHOTREXATE SODIUM) [Suspect]
     Active Substance: METHOTREXATE SODIUM
     Indication: Acute lymphocytic leukaemia
     Dosage: 15 MG
     Route: 037
     Dates: start: 20220125
  2. ATRIANCE [Suspect]
     Active Substance: NELARABINE
     Indication: Acute lymphocytic leukaemia
     Route: 042
     Dates: start: 20220112
  3. CYTARABINE [Suspect]
     Active Substance: CYTARABINE
     Dosage: 40 MG
     Route: 037
     Dates: start: 20220125
  4. DEXAMETHASONE [Concomitant]
     Active Substance: DEXAMETHASONE
  5. ESOMEPRAZOLE [Concomitant]
     Active Substance: ESOMEPRAZOLE
  6. NOXAFIL [Concomitant]
     Active Substance: POSACONAZOLE
  7. VALTREX [Concomitant]
     Active Substance: VALACYCLOVIR HYDROCHLORIDE
  8. BACTRIM [Concomitant]
     Active Substance: SULFAMETHOXAZOLE\TRIMETHOPRIM
  9. CALCIUM\CHOLECALCIFEROL [Concomitant]
     Active Substance: CALCIUM\CHOLECALCIFEROL
  10. LANTUS [Concomitant]
     Active Substance: INSULIN GLARGINE
  11. NOVORAPID [Concomitant]
     Active Substance: INSULIN ASPART

REACTIONS (1)
  - Myelopathy [Not Recovered/Not Resolved]

NARRATIVE: CASE EVENT DATE: 20220210
